FAERS Safety Report 23394000 (Version 1)
Quarter: 2024Q1

REPORT INFORMATION
  Report Type: Spontaneous
  Country: US (occurrence: US)
  Receive Date: 20240111
  Receipt Date: 20240111
  Transmission Date: 20240409
  Serious: No
  Sender: FDA-Public Use
  Company Number: US-Dermavant-000944

PATIENT
  Age: 63 Year
  Sex: Male

DRUGS (5)
  1. TAPINAROF [Suspect]
     Active Substance: TAPINAROF
     Indication: Psoriasis
     Dosage: ELBOWS, KNEES, LOWER LEGS AND EARS
     Route: 061
     Dates: start: 20230612
  2. CRESTOR [Concomitant]
     Active Substance: ROSUVASTATIN CALCIUM
  3. LEXAPRO [Concomitant]
     Active Substance: ESCITALOPRAM OXALATE
  4. ALLEGRA [Concomitant]
     Active Substance: FEXOFENADINE HYDROCHLORIDE
  5. OLOPATADINE [Concomitant]
     Active Substance: OLOPATADINE

REACTIONS (1)
  - Folliculitis [Not Recovered/Not Resolved]
